FAERS Safety Report 8829286 (Version 1)
Quarter: 2012Q4

REPORT INFORMATION
  Report Type: 
  Country: US (occurrence: US)
  Receive Date: 20121009
  Receipt Date: 20121009
  Transmission Date: 20130627
  Serious: No
  Sender: FDA-Public Use
  Company Number: US-009507513-1210USA000178

PATIENT
  Age: 52 Year
  Sex: Female

DRUGS (4)
  1. JANUVIA [Suspect]
     Dosage: 50 mg, qd
     Route: 048
     Dates: start: 20120914, end: 20120917
  2. ADVAIR [Concomitant]
  3. SINGULAIR [Concomitant]
     Route: 048
  4. LASIX (FUROSEMIDE) [Concomitant]

REACTIONS (8)
  - Chest pain [Not Recovered/Not Resolved]
  - Abdominal pain upper [Not Recovered/Not Resolved]
  - Nausea [Not Recovered/Not Resolved]
  - Diarrhoea [Not Recovered/Not Resolved]
  - Abdominal pain [Not Recovered/Not Resolved]
  - Drug prescribing error [Unknown]
  - Malaise [Not Recovered/Not Resolved]
  - Wrong drug administered [Unknown]
